FAERS Safety Report 13754579 (Version 1)
Quarter: 2017Q3

REPORT INFORMATION
  Report Type: Spontaneous
  Country: US (occurrence: US)
  Receive Date: 20170714
  Receipt Date: 20170714
  Transmission Date: 20171127
  Serious: Yes (Hospitalization, Other)
  Sender: FDA-Public Use
  Company Number: US-HORIZON-RAV-0187-2017

PATIENT
  Age: 14 Year
  Sex: Female

DRUGS (3)
  1. RAVICTI [Suspect]
     Active Substance: GLYCEROL PHENYLBUTYRATE
     Indication: ORNITHINE TRANSCARBAMOYLASE DEFICIENCY
     Dosage: 5 ML TID
  2. ESSENTIAL BRANCHED CHAIN AMINO ACID [Concomitant]
  3. CITRULLINE [Concomitant]
     Active Substance: CITRULLINE
     Dosage: UNKNOWN DOSAGE, WAS INCREASED AFTER EVENT TO 17 PACKETS/DAY

REACTIONS (4)
  - Nasopharyngitis [Recovered/Resolved]
  - Ammonia increased [Recovered/Resolved]
  - Feeling abnormal [Recovered/Resolved]
  - Decreased appetite [Recovered/Resolved]

NARRATIVE: CASE EVENT DATE: 201705
